FAERS Safety Report 14076684 (Version 1)
Quarter: 2017Q4

REPORT INFORMATION
  Report Type: Report from Study
  Country: US (occurrence: US)
  Receive Date: 20171011
  Receipt Date: 20171011
  Transmission Date: 20180321
  Serious: Yes (Other)
  Sender: FDA-Public Use
  Company Number: US-TESARO, INC-US-2017TSO02602

PATIENT

DRUGS (1)
  1. ZEJULA [Suspect]
     Active Substance: NIRAPARIB
     Indication: OVARIAN CANCER
     Dosage: 300 MG, QD (3 CAPSULES AT BEDTIME)
     Route: 048
     Dates: start: 20170725, end: 20170825

REACTIONS (5)
  - Metastases to liver [Unknown]
  - Regurgitation [Unknown]
  - Renal disorder [Unknown]
  - Adverse drug reaction [Unknown]
  - Blood pressure increased [Unknown]
